FAERS Safety Report 10568069 (Version 1)
Quarter: 2014Q4

REPORT INFORMATION
  Report Type: Spontaneous
  Country: US (occurrence: None)
  Receive Date: 20141105
  Receipt Date: 20141105
  Transmission Date: 20150529
  Serious: Yes (Disabling)
  Sender: FDA-Public Use
  Company Number: None

PATIENT
  Age: 54 Year
  Sex: Female
  Weight: 49.9 kg

DRUGS (1)
  1. SULFAMETHOXAZOLE [Suspect]
     Active Substance: SULFAMETHOXAZOLE
     Indication: PRODUCT USED FOR UNKNOWN INDICATION
     Dosage: 1 TABLET
     Route: 048
     Dates: start: 20140322, end: 20140329

REACTIONS (11)
  - Abdominal pain upper [None]
  - Paraesthesia [None]
  - Fatigue [None]
  - Muscle spasms [None]
  - Fall [None]
  - Fungal infection [None]
  - Contusion [None]
  - Injury [None]
  - Diarrhoea [None]
  - Hyperthyroidism [None]
  - Quality of life decreased [None]

NARRATIVE: CASE EVENT DATE: 20140325
